FAERS Safety Report 9937045 (Version 1)
Quarter: 2014Q1

REPORT INFORMATION
  Report Type: Spontaneous
  Country: US (occurrence: None)
  Receive Date: 20140122
  Receipt Date: 20140122
  Transmission Date: 20141002
  Serious: No
  Sender: FDA-Public Use
  Company Number: AP356-00256-SPO-US

PATIENT
  Age: 41 Year
  Sex: Female

DRUGS (2)
  1. BELVIQ [Suspect]
     Indication: WEIGHT CONTROL
     Route: 048
     Dates: start: 201309, end: 2013
  2. METFORMIN (METFORMIN) [Concomitant]

REACTIONS (1)
  - Oedema peripheral [None]
